FAERS Safety Report 20218264 (Version 5)
Quarter: 2023Q2

REPORT INFORMATION
  Report Type: Report from Study
  Country: US (occurrence: US)
  Receive Date: 20211222
  Receipt Date: 20230425
  Transmission Date: 20230721
  Serious: No
  Sender: FDA-Public Use
  Company Number: US-ABBVIE-21K-163-4205158-00

PATIENT
  Sex: Male

DRUGS (4)
  1. LEUPROLIDE ACETATE [Suspect]
     Active Substance: LEUPROLIDE ACETATE
     Indication: Product used for unknown indication
     Route: 058
  2. ENZALUTAMIDE [Suspect]
     Active Substance: ENZALUTAMIDE
     Indication: Prostate cancer
     Dosage: FOUR 40 MILLIGRAM TABLETS BY MOUTH ONCE A DAY
     Route: 048
     Dates: start: 20210421, end: 20220329
  3. ENZALUTAMIDE [Suspect]
     Active Substance: ENZALUTAMIDE
     Indication: Prostate cancer
     Dosage: FOUR 40 MILLIGRAM TABLETS BY MOUTH ONCE A DAY
     Route: 048
     Dates: start: 20210426, end: 20220329
  4. ENZALUTAMIDE [Suspect]
     Active Substance: ENZALUTAMIDE
     Indication: Prostate cancer
     Route: 048
     Dates: start: 202203, end: 20220712

REACTIONS (2)
  - Hot flush [Unknown]
  - Unevaluable event [Unknown]
